FAERS Safety Report 20590217 (Version 1)
Quarter: 2022Q1

REPORT INFORMATION
  Report Type: Spontaneous
  Country: US (occurrence: None)
  Receive Date: 20220314
  Receipt Date: 20220314
  Transmission Date: 20220423
  Serious: No
  Sender: FDA-Public Use
  Company Number: None

PATIENT
  Sex: Male

DRUGS (2)
  1. ADYNOVATE [Suspect]
     Active Substance: ANTIHEMOPHILIC FACTOR, HUMAN RECOMBINANT
     Indication: Factor XIII deficiency
     Dosage: OTHER STRENGTH : 2057U;?FREQUENCY : AS NEEDED;?
     Route: 042
     Dates: start: 20191022
  2. ADYNOVATE [Suspect]
     Active Substance: ANTIHEMOPHILIC FACTOR, HUMAN RECOMBINANT
     Indication: Factor XIII deficiency
     Dosage: OTHER STRENGTH : 249U;?FREQUENCY : AS NEEDED;?
     Route: 042
     Dates: start: 20191022

REACTIONS (1)
  - Ear infection [None]
